FAERS Safety Report 9534739 (Version 1)
Quarter: 2013Q3

REPORT INFORMATION
  Report Type: Spontaneous
  Country: US (occurrence: US)
  Receive Date: 20130918
  Receipt Date: 20130918
  Transmission Date: 20140515
  Serious: No
  Sender: FDA-Public Use
  Company Number: US-PURDUE-USA-2011-0080300

PATIENT
  Age: 76 Year
  Sex: Female

DRUGS (1)
  1. BUTRANS [Suspect]
     Indication: SURGERY
     Dosage: 5 MCG, Q1H
     Route: 062

REACTIONS (1)
  - Nausea [Not Recovered/Not Resolved]
